FAERS Safety Report 7637920-0 (Version None)
Quarter: 2011Q3

REPORT INFORMATION
  Report Type: 
  Country: None (occurrence: None)
  Receive Date: 20110727
  Receipt Date: 20110718
  Transmission Date: 20111222
  Serious: Yes (Hospitalization, Disabling, Other)
  Sender: FDA-Public Use
  Company Number: US-BAYER-201039638NA

PATIENT
  Age: 33 Year
  Sex: Female
  Weight: 92.971 kg

DRUGS (4)
  1. YASMIN [Suspect]
     Indication: CONTRACEPTION
     Dosage: UNK
     Route: 048
     Dates: start: 20060601, end: 20061204
  2. YASMIN [Suspect]
     Indication: DYSMENORRHOEA
  3. YASMIN [Suspect]
     Indication: PREMENSTRUAL SYNDROME
  4. NAPROXEN (ALEVE) [Concomitant]
     Indication: DYSMENORRHOEA
     Dosage: UNK UNK, TID

REACTIONS (7)
  - TRAUMATIC LUNG INJURY [None]
  - DEEP VEIN THROMBOSIS [None]
  - DYSPNOEA [None]
  - PULMONARY INFARCTION [None]
  - NON-CARDIAC CHEST PAIN [None]
  - PULMONARY EMBOLISM [None]
  - CHEST PAIN [None]
